FAERS Safety Report 20668283 (Version 5)
Quarter: 2022Q3

REPORT INFORMATION
  Report Type: Spontaneous
  Country: US (occurrence: US)
  Receive Date: 20220404
  Receipt Date: 20220713
  Transmission Date: 20221026
  Serious: Yes (Hospitalization, Other)
  Sender: FDA-Public Use
  Company Number: US-PFIZER INC-202200446949

PATIENT
  Age: 77 Year
  Sex: Male

DRUGS (3)
  1. INLYTA [Suspect]
     Active Substance: AXITINIB
     Dosage: 5 MG, 1X/DAY, (5MG QD)
     Dates: start: 20220315, end: 20220320
  2. INLYTA [Suspect]
     Active Substance: AXITINIB
     Dosage: UNK
     Dates: start: 20220321
  3. INLYTA [Suspect]
     Active Substance: AXITINIB
     Dosage: 1 MG

REACTIONS (14)
  - Renal failure [Unknown]
  - Heart rate increased [Unknown]
  - Blood potassium decreased [Unknown]
  - Supraventricular tachycardia [Unknown]
  - Cardiac disorder [Unknown]
  - Blood pressure increased [Unknown]
  - Aphthous ulcer [Unknown]
  - Dysphonia [Unknown]
  - Urticaria [Recovered/Resolved]
  - Headache [Unknown]
  - Aphonia [Unknown]
  - Fatigue [Unknown]
  - Stomatitis [Unknown]
  - Taste disorder [Unknown]

NARRATIVE: CASE EVENT DATE: 20220101
